FAERS Safety Report 8544728-0 (Version None)
Quarter: 2012Q3

REPORT INFORMATION
  Report Type: 
  Country: None (occurrence: None)
  Receive Date: 20120727
  Receipt Date: 20120718
  Transmission Date: 20120928
  Serious: Yes (Other)
  Sender: FDA-Public Use
  Company Number: US-BRISTOL-MYERS SQUIBB COMPANY-16654790

PATIENT
  Age: 62 Year
  Sex: Male

DRUGS (20)
  1. PRAVACHOL [Suspect]
     Route: 048
  2. NASONEX [Concomitant]
     Dosage: 1DF:50MCG/INH 2 SPRAYS.
     Route: 045
  3. METFORMIN HCL [Concomitant]
     Dosage: 1TAB/DAY
     Route: 048
  4. FUROSEMIDE [Concomitant]
     Dosage: 1TAB/DAY
     Route: 048
  5. LOSARTAN POTASSIUM [Concomitant]
     Dosage: 1TAB/DAY
     Route: 048
  6. XANAX [Concomitant]
     Dosage: 1TAB/DAY
     Route: 048
  7. PROTONIX [Concomitant]
     Dosage: 1 TAB
  8. TORSEMIDE [Concomitant]
     Dosage: 1TAB/DAY
     Route: 048
  9. PLAVIX [Concomitant]
     Dosage: 1TAB/DAY
     Route: 048
  10. FLONASE [Concomitant]
     Dosage: 1 SPRAY
     Route: 045
  11. EFFEXOR XR [Concomitant]
     Dosage: 1 CAP INCREASED TO WEEKLY TO 3-4 PER DAY 150MG
     Route: 048
  12. TRICOR [Concomitant]
     Dosage: 1TAB/DAY
     Route: 048
  13. AMLODIPINE [Concomitant]
     Dosage: 1TAB/DAY
  14. AMITRIPTYLINE HYDROCHLORIDE [Concomitant]
     Dosage: 1-2 TABS
     Route: 048
  15. LEVOTHYROXINE SODIUM [Concomitant]
     Dosage: 1TAB/DAY
     Route: 048
  16. TOPROL-XL [Concomitant]
     Dosage: 1TAB/DAY
  17. NITROGLYCERIN [Concomitant]
     Route: 060
  18. ACETYLSALICYLIC ACID SRT [Concomitant]
     Dosage: 1DF:81 CAPS.
     Route: 048
  19. IMDUR [Concomitant]
     Dosage: 1DAY/MORNING.
     Route: 048
  20. ZOFRAN [Concomitant]
     Indication: NAUSEA
     Dosage: 1 TAB
     Route: 048

REACTIONS (1)
  - THROAT TIGHTNESS [None]
